FAERS Safety Report 4360876-3 (Version None)
Quarter: 2004Q2

REPORT INFORMATION
  Report Type: 
  Country: None (occurrence: None)
  Receive Date: 20040519
  Receipt Date: 20040519
  Transmission Date: 20050107
  Serious: Yes (Hospitalization)
  Sender: FDA-Public Use
  Company Number: None

PATIENT
  Age: 85 Year
  Sex: Male

DRUGS (1)
  1. MEXILETINE HCL [Suspect]
     Indication: ARRHYTHMIA
     Dosage: 150 MG PO TID
     Route: 048
     Dates: start: 20030801, end: 20031201

REACTIONS (4)
  - CONFUSIONAL STATE [None]
  - DELIRIUM [None]
  - GAIT DISTURBANCE [None]
  - VENTRICULAR TACHYCARDIA [None]
